FAERS Safety Report 15425202 (Version 1)
Quarter: 2018Q3

REPORT INFORMATION
  Report Type: Spontaneous
  Country: US (occurrence: US)
  Receive Date: 20180925
  Receipt Date: 20180925
  Transmission Date: 20181010
  Serious: No
  Sender: FDA-Public Use
  Company Number: US-BIOVITRUM-2018US0443

PATIENT
  Sex: Male
  Weight: 3.63 kg

DRUGS (3)
  1. ENOXAPARIN [Concomitant]
     Active Substance: ENOXAPARIN
     Indication: HYPERCOAGULATION
     Route: 064
  2. METHYLPREDNISOLONE. [Concomitant]
     Active Substance: METHYLPREDNISOLONE
     Dosage: DURING WEEKS 19.1?19.7
     Route: 064
  3. ANAKINRA [Suspect]
     Active Substance: ANAKINRA
     Indication: STILL^S DISEASE
     Dosage: PRECONCEPTION?16.6 WEEKS AND 19.4?37.3 WEEKS AND DURING BREAST FEEDING.
     Route: 064

REACTIONS (3)
  - Exposure via breast milk [Unknown]
  - Foetal exposure during pregnancy [Recovered/Resolved]
  - Jaundice neonatal [Unknown]
